FAERS Safety Report 24575965 (Version 1)
Quarter: 2024Q4

REPORT INFORMATION
  Report Type: Spontaneous
  Country: US (occurrence: None)
  Receive Date: 20241101
  Receipt Date: 20241101
  Transmission Date: 20250115
  Serious: Yes (Other)
  Sender: Public
  Company Number: None

PATIENT
  Age: 56 Year
  Sex: Female

DRUGS (1)
  1. REPATHA [Suspect]
     Active Substance: EVOLOCUMAB
     Indication: Hyperlipidaemia
     Dosage: 1 DF DOSAGE FORM EVERY 14 DAYS SUBCUTNEOUS?
     Route: 058

REACTIONS (7)
  - Therapy cessation [None]
  - Headache [None]
  - Back pain [None]
  - Rhinorrhoea [None]
  - Diabetes mellitus inadequate control [None]
  - Nasopharyngitis [None]
  - Brain fog [None]

NARRATIVE: CASE EVENT DATE: 20241101
